FAERS Safety Report 7203829-X (Version None)
Quarter: 2010Q4

REPORT INFORMATION
  Report Type: 
  Country: None (occurrence: None)
  Receive Date: 20101230
  Receipt Date: 20101222
  Transmission Date: 20110411
  Serious: Yes (Hospitalization)
  Sender: FDA-Public Use
  Company Number: JP-PFIZER INC-2010140940

PATIENT
  Sex: Female
  Weight: 42.5 kg

DRUGS (8)
  1. LYRICA [Suspect]
     Indication: TRIGEMINAL NEURALGIA
     Dosage: 75 MG, 1X/DAY
     Route: 048
     Dates: start: 20100714, end: 20101030
  2. NORVASC [Suspect]
     Indication: HYPERTENSION
     Dosage: 2.5 MG, 2X/DAY
     Route: 048
     Dates: start: 20101029, end: 20101102
  3. TEGRETOL [Suspect]
     Indication: TRIGEMINAL NEURALGIA
     Dosage: 200 MG/DAY
     Route: 048
     Dates: start: 20090801
  4. TEGRETOL [Suspect]
     Dosage: 200 MG, 2X/DAY
     Route: 048
     Dates: start: 20100401
  5. TEGRETOL [Suspect]
     Dosage: 100 MG, 2X/DAY
     Route: 048
     Dates: start: 20100423
  6. TEGRETOL [Suspect]
     Dosage: 100 MG, 3X/DAY
     Route: 048
     Dates: start: 20100604
  7. TEGRETOL [Suspect]
     Dosage: 100 MG, 4X/DAY
     Route: 048
     Dates: start: 20100716, end: 20101102
  8. ZONISAMIDE [Suspect]
     Indication: POST HERPETIC NEURALGIA
     Dosage: 100 MG, 2X/DAY
     Route: 048
     Dates: end: 20101102

REACTIONS (3)
  - ALTERED STATE OF CONSCIOUSNESS [None]
  - GENERALISED ERYTHEMA [None]
  - MALAISE [None]
